FAERS Safety Report 9506543 (Version 4)
Quarter: 2013Q4

REPORT INFORMATION
  Report Type: Spontaneous
  Country: JP (occurrence: JP)
  Receive Date: 20130906
  Receipt Date: 20131106
  Transmission Date: 20140711
  Serious: Yes (Other)
  Sender: FDA-Public Use
  Company Number: PHHY2013JP098151

PATIENT
  Age: 67 Year
  Sex: Female

DRUGS (10)
  1. DIOVAN [Suspect]
     Indication: HYPERTENSION
     Dosage: 80 MG, DAILY
     Route: 048
     Dates: start: 201001, end: 20130906
  2. SYMMETREL [Concomitant]
     Indication: HEAD INJURY
     Dosage: 150 MG, UNK
     Route: 048
  3. GASMOTIN [Concomitant]
     Indication: GASTRITIS
     Dosage: 10 MG, UNK
     Route: 048
  4. CONSTAN [Concomitant]
     Indication: INSOMNIA
     Dosage: 0.4 MG, UNK
     Route: 048
  5. BIOFERMIN//LACTOMIN [Concomitant]
     Indication: DIARRHOEA
     Dosage: 3 DF, UNK
     Route: 048
  6. PRIMPERAN [Concomitant]
     Indication: VOMITING
     Dosage: 5 MG, UNK
     Route: 048
  7. VOGLIBOSE [Concomitant]
     Indication: DIABETES MELLITUS
     Dosage: 0.6 MG, UNK
     Route: 048
  8. AMLODIPINE [Concomitant]
     Indication: HYPERTENSION
     Dosage: 5 MG, UNK
     Route: 048
     Dates: end: 20130906
  9. RACOL [Concomitant]
     Indication: GASTRIC FISTULA
     Dosage: 1200 ML, UNK
     Route: 048
  10. NOVOLIN [Concomitant]
     Indication: DIABETES MELLITUS
     Dosage: 28 IU, UNK
     Route: 058

REACTIONS (6)
  - Pemphigoid [Not Recovered/Not Resolved]
  - Blister [Not Recovered/Not Resolved]
  - Hyperglycaemia [Unknown]
  - White blood cell count increased [Unknown]
  - Pyrexia [Unknown]
  - Urinary tract infection [Unknown]
